FAERS Safety Report 21743758 (Version 1)
Quarter: 2022Q4

REPORT INFORMATION
  Report Type: Report from Study
  Country: US (occurrence: US)
  Receive Date: 20221217
  Receipt Date: 20221217
  Transmission Date: 20230113
  Serious: No
  Sender: FDA-Public Use
  Company Number: US-ABBVIE-4195877

PATIENT
  Sex: Female
  Weight: 96.615 kg

DRUGS (1)
  1. SKYRIZI [Suspect]
     Active Substance: RISANKIZUMAB-RZAA
     Indication: Psoriasis
     Dosage: FORM STRENGTH: 150 MILLIGRAM?UNDER THE SKIN ON DAY 28
     Route: 058
     Dates: start: 20220804

REACTIONS (1)
  - Pruritus [Not Recovered/Not Resolved]
